FAERS Safety Report 7406559-4 (Version None)
Quarter: 2011Q2

REPORT INFORMATION
  Report Type: 
  Country: None (occurrence: None)
  Receive Date: 20110406
  Receipt Date: 20110406
  Transmission Date: 20111010
  Serious: Yes (Other)
  Sender: FDA-Public Use
  Company Number: None

PATIENT
  Sex: Male
  Weight: 97.0698 kg

DRUGS (2)
  1. CIPRO [Suspect]
     Indication: CYSTITIS
     Dosage: 500 MG BID PO
     Route: 048
     Dates: start: 20110329, end: 20110401
  2. CIPRO [Suspect]
     Indication: PYELONEPHRITIS
     Dosage: 500 MG BID PO
     Route: 048
     Dates: start: 20110329, end: 20110401

REACTIONS (1)
  - TENDON RUPTURE [None]
